FAERS Safety Report 21022083 (Version 1)
Quarter: 2022Q2

REPORT INFORMATION
  Report Type: Spontaneous
  Country: US (occurrence: None)
  Receive Date: 20220628
  Receipt Date: 20220628
  Transmission Date: 20220721
  Serious: Yes (Hospitalization, Disabling)
  Sender: FDA-Public Use
  Company Number: None

PATIENT
  Age: 33 Year
  Sex: Female

DRUGS (3)
  1. ADDERALL XR [Suspect]
     Active Substance: AMPHETAMINE ASPARTATE\AMPHETAMINE SULFATE\DEXTROAMPHETAMINE SACCHARATE\DEXTROAMPHETAMINE SULFATE
     Indication: Disturbance in attention
     Route: 048
     Dates: start: 20180901, end: 20200706
  2. ADDERALL XR [Suspect]
     Active Substance: AMPHETAMINE ASPARTATE\AMPHETAMINE SULFATE\DEXTROAMPHETAMINE SACCHARATE\DEXTROAMPHETAMINE SULFATE
     Indication: Attention deficit hyperactivity disorder
  3. PROZAC [Suspect]
     Active Substance: FLUOXETINE HYDROCHLORIDE
     Indication: Anxiety
     Dosage: FREQUENCY : EVERY DAY BEFORE NOON;?
     Route: 048
     Dates: start: 20190801, end: 20200706

REACTIONS (6)
  - Psychotic disorder [None]
  - Disability [None]
  - Bipolar disorder [None]
  - Obsessive-compulsive disorder [None]
  - Attention deficit hyperactivity disorder [None]
  - Impaired work ability [None]

NARRATIVE: CASE EVENT DATE: 20200706
